FAERS Safety Report 19462194 (Version 1)
Quarter: 2021Q2

REPORT INFORMATION
  Report Type: Report from Study
  Country: US (occurrence: US)
  Receive Date: 20210625
  Receipt Date: 20210625
  Transmission Date: 20210717
  Serious: Yes (Other)
  Sender: FDA-Public Use
  Company Number: US-TAKEDA-2021TUS038615

PATIENT
  Sex: Female
  Weight: 99.77 kg

DRUGS (26)
  1. EPINEPHRINE. [Concomitant]
     Active Substance: EPINEPHRINE
  2. MULTIVITAMIN [Concomitant]
     Active Substance: VITAMINS
  3. CYCLOBENZAPRINE. [Concomitant]
     Active Substance: CYCLOBENZAPRINE
  4. ACETAMINOPHEN. [Concomitant]
     Active Substance: ACETAMINOPHEN
  5. KRILL OIL [Concomitant]
     Active Substance: DIETARY SUPPLEMENT\KRILL OIL
  6. DHEA [Concomitant]
     Active Substance: PRASTERONE
  7. VITAMIN D2 [Concomitant]
     Active Substance: ERGOCALCIFEROL
  8. VITAMIN D3 [Concomitant]
     Active Substance: CHOLECALCIFEROL
  9. LISINOPRIL. [Concomitant]
     Active Substance: LISINOPRIL
  10. PREDNISONE. [Concomitant]
     Active Substance: PREDNISONE
  11. TURMERIC [Concomitant]
     Active Substance: HERBALS\TURMERIC
  12. COENZYME Q10 + ALIPOIC ACID [Concomitant]
  13. MAGNESIUM CITRATE. [Concomitant]
     Active Substance: MAGNESIUM CITRATE
  14. XANAX [Concomitant]
     Active Substance: ALPRAZOLAM
  15. DIPHENHYDRAMINE. [Concomitant]
     Active Substance: DIPHENHYDRAMINE
  16. ASPIRIN. [Concomitant]
     Active Substance: ASPIRIN
  17. VITAMIN E [Concomitant]
     Active Substance: .ALPHA.-TOCOPHEROL
  18. VITAMIN B COMPLEX [Concomitant]
     Active Substance: CYANOCOBALAMIN\DEXPANTHENOL\NIACINAMIDE\PYRIDOXINE HYDROCHLORIDE\RIBOFLAVIN 5^-PHOSPHATE SODIUM\THIAMINE HYDROCHLORIDE\VITAMIN B COMPLEX
  19. AZELASTINE. [Concomitant]
     Active Substance: AZELASTINE HYDROCHLORIDE
  20. ESTRADIOL. [Concomitant]
     Active Substance: ESTRADIOL
  21. SODIUM CHLORIDE. [Concomitant]
     Active Substance: SODIUM CHLORIDE
  22. CUVITRU [Suspect]
     Active Substance: HUMAN IMMUNOGLOBULIN G
     Indication: IMMUNODEFICIENCY COMMON VARIABLE
     Dosage: 12 GRAM, 1/WEEK
     Route: 058
     Dates: start: 20210603
  23. FLONASE [Concomitant]
     Active Substance: FLUTICASONE PROPIONATE
  24. VITAMIN C [Concomitant]
     Active Substance: ASCORBIC ACID
  25. HYDROCODONE/ACETAMINOPHEN [Concomitant]
     Active Substance: ACETAMINOPHEN\HYDROCODONE
  26. LIDOCAINE. [Concomitant]
     Active Substance: LIDOCAINE

REACTIONS (3)
  - Neuropathy peripheral [Unknown]
  - Blood pressure increased [Unknown]
  - Nervous system disorder [Unknown]
